FAERS Safety Report 6104171-0 (Version None)
Quarter: 2009Q1

REPORT INFORMATION
  Report Type: 
  Country: None (occurrence: None)
  Receive Date: 20090305
  Receipt Date: 20090227
  Transmission Date: 20090719
  Serious: Yes (Life-Threatening, Hospitalization)
  Sender: FDA-Public Use
  Company Number: PH-CELGENEUS-THAPH200700383

PATIENT
  Sex: Female

DRUGS (5)
  1. THALIDOMIDE [Suspect]
     Indication: MULTIPLE MYELOMA
     Route: 048
     Dates: start: 20070918
  2. THALIDOMIDE [Suspect]
     Route: 048
     Dates: start: 20070730, end: 20070906
  3. LOSARTAN [Concomitant]
     Indication: HYPERTENSION
     Route: 065
  4. FELODIPINE [Concomitant]
     Indication: HYPERTENSION
     Route: 065
  5. LEVOFLOXACIN [Concomitant]
     Indication: UPPER RESPIRATORY TRACT INFECTION
     Route: 048
     Dates: start: 20071005, end: 20071008

REACTIONS (1)
  - CARDIOMYOPATHY [None]
